FAERS Safety Report 5489502-7 (Version None)
Quarter: 2007Q4

REPORT INFORMATION
  Report Type: 
  Country: None (occurrence: None)
  Receive Date: 20071018
  Receipt Date: 20071007
  Transmission Date: 20080405
  Serious: Yes (Disabling)
  Sender: FDA-Public Use
  Company Number: IL-AMGEN-US247910

PATIENT
  Age: 32 Year
  Sex: Female

DRUGS (5)
  1. ENBREL [Suspect]
     Indication: RHEUMATOID ARTHRITIS
     Route: 058
     Dates: start: 20000101, end: 20060101
  2. ARAVA [Concomitant]
     Indication: RHEUMATOID ARTHRITIS
  3. HYDROXYCHLOROQUINE PHOSPHATE [Concomitant]
     Indication: RHEUMATOID ARTHRITIS
  4. METHOTREXATE [Concomitant]
     Indication: RHEUMATOID ARTHRITIS
     Dosage: 15 MG; UNSPECIFEID FREQUENCY
     Route: 048
  5. METHOTREXATE [Concomitant]
     Dosage: 10 MG; UNSPECIFIED FREQUENCY
     Route: 048
     Dates: end: 20060101

REACTIONS (3)
  - HYPOAESTHESIA [None]
  - LYMPHADENOPATHY [None]
  - PAIN [None]
